FAERS Safety Report 8490152-9 (Version None)
Quarter: 2012Q3

REPORT INFORMATION
  Report Type: 
  Country: None (occurrence: None)
  Receive Date: 20120705
  Receipt Date: 20120627
  Transmission Date: 20120928
  Serious: Yes (Other)
  Sender: FDA-Public Use
  Company Number: US-JNJFOC-20120614099

PATIENT
  Age: 61 Year
  Sex: Male

DRUGS (5)
  1. STELARA [Suspect]
     Indication: PSORIASIS
     Dosage: INITIAL, THEN AT 4 WEEKS AFTER THAT EVERY 12 WEEKS. DECREASED DOSING OF USTEKINUMAB TO EVERY 8 WEEKS
     Route: 058
     Dates: start: 20120218
  2. LOSARTAN POTASSIUM [Concomitant]
     Indication: PRODUCT USED FOR UNKNOWN INDICATION
     Route: 065
  3. STELARA [Suspect]
     Indication: PSORIATIC ARTHROPATHY
     Dosage: INITIAL, THEN AT 4 WEEKS AFTER THAT EVERY 12 WEEKS. DECREASED DOSING OF USTEKINUMAB TO EVERY 8 WEEKS
     Route: 058
     Dates: start: 20120218
  4. ASPIRIN [Concomitant]
     Indication: PRODUCT USED FOR UNKNOWN INDICATION
     Route: 065
  5. METFORMIN HCL [Concomitant]
     Indication: PRODUCT USED FOR UNKNOWN INDICATION
     Route: 065

REACTIONS (3)
  - OFF LABEL USE [None]
  - BLOOD GLUCOSE INCREASED [None]
  - PSORIASIS [None]
